FAERS Safety Report 4867578-5 (Version None)
Quarter: 2005Q4

REPORT INFORMATION
  Report Type: 
  Country: None (occurrence: None)
  Receive Date: 20051223
  Receipt Date: 20051223
  Transmission Date: 20060501
  Serious: Yes (Hospitalization)
  Sender: FDA-Public Use
  Company Number: None

PATIENT
  Age: 45 Year
  Sex: Male
  Weight: 56.9 kg

DRUGS (10)
  1. CISPLATIN [Suspect]
     Indication: SQUAMOUS CELL CARCINOMA
     Dosage: 167 MG Q3WK
     Dates: start: 20051215
  2. XRT (ONCE DAILY) [Suspect]
     Indication: SQUAMOUS CELL CARCINOMA
     Dates: start: 20051215, end: 20060108
  3. ZOFRAN [Concomitant]
  4. TOPROL-XL [Concomitant]
  5. ROXICET [Concomitant]
  6. REGLAN [Concomitant]
  7. DURAGESIC-100 [Concomitant]
  8. DECADRON [Concomitant]
  9. ATENOLOL [Concomitant]
  10. BACTRIM [Concomitant]

REACTIONS (2)
  - ABDOMINAL PAIN [None]
  - POST PROCEDURAL COMPLICATION [None]
